FAERS Safety Report 20990706 (Version 2)
Quarter: 2023Q4

REPORT INFORMATION
  Report Type: Spontaneous
  Country: GB (occurrence: GB)
  Receive Date: 20220622
  Receipt Date: 20231117
  Transmission Date: 20240109
  Serious: Yes (Hospitalization, Other)
  Sender: FDA-Public Use
  Company Number: GB-TEVA-2022-GB-2047844

PATIENT
  Age: 6 Decade
  Sex: Male

DRUGS (4)
  1. PROPRANOLOL [Suspect]
     Active Substance: PROPRANOLOL HYDROCHLORIDE
     Indication: Portal hypertension
     Route: 065
  2. PROPRANOLOL [Suspect]
     Active Substance: PROPRANOLOL HYDROCHLORIDE
     Dosage: 40 MILLIGRAM DAILY;
     Route: 065
  3. METOLAZONE [Suspect]
     Active Substance: METOLAZONE
     Indication: Portopulmonary hypertension
     Dosage: LOW DOSE
     Route: 065
  4. TERLIPRESSIN [Concomitant]
     Active Substance: TERLIPRESSIN
     Indication: Portopulmonary hypertension
     Dosage: 2 MILLIGRAM DAILY;
     Route: 065

REACTIONS (7)
  - Renal impairment [Unknown]
  - Pulmonary hypertension [Recovering/Resolving]
  - Respiratory failure [Recovering/Resolving]
  - Pulmonary valve incompetence [Recovering/Resolving]
  - Tricuspid valve incompetence [Recovering/Resolving]
  - Cardiomegaly [Recovering/Resolving]
  - Splenomegaly [Recovering/Resolving]
